FAERS Safety Report 13073892 (Version 1)
Quarter: 2016Q4

REPORT INFORMATION
  Report Type: Report from Study
  Country: IT (occurrence: IT)
  Receive Date: 20161229
  Receipt Date: 20161229
  Transmission Date: 20170207
  Serious: Yes (Other)
  Sender: FDA-Public Use
  Company Number: IT-ALLERGAN-1682544US

PATIENT
  Age: 53 Year
  Sex: Male

DRUGS (3)
  1. BICALUTAMIDE. [Suspect]
     Active Substance: BICALUTAMIDE
     Indication: SALIVARY GLAND CANCER
     Dosage: 50 MG, QD
     Route: 048
     Dates: start: 20160607, end: 20160810
  2. LAMIVUDINE. [Concomitant]
     Active Substance: LAMIVUDINE
     Indication: PRODUCT USED FOR UNKNOWN INDICATION
     Dosage: 100 MG, QD
     Route: 048
     Dates: start: 20160826
  3. TRIPTORELIN PAMOATE - BP [Suspect]
     Active Substance: TRIPTORELIN PAMOATE
     Indication: SALIVARY GLAND CANCER
     Dosage: 3.75 MG, ONCE EVERY 28 DAYS
     Route: 030
     Dates: start: 20160614, end: 20160810

REACTIONS (1)
  - Electrocardiogram QT prolonged [Recovered/Resolved]

NARRATIVE: CASE EVENT DATE: 20160810
